FAERS Safety Report 18854854 (Version 3)
Quarter: 2021Q1

REPORT INFORMATION
  Report Type: Report from Study
  Country: US (occurrence: US)
  Receive Date: 20210205
  Receipt Date: 20210308
  Transmission Date: 20210420
  Serious: Yes (Hospitalization, Other)
  Sender: FDA-Public Use
  Company Number: US-JNJFOC-20201255609

PATIENT
  Age: 62 Year
  Sex: Female
  Weight: 79.1 kg

DRUGS (6)
  1. AMBRISENTAN [Concomitant]
     Active Substance: AMBRISENTAN
  2. SILDENAFIL CITRATE. [Concomitant]
     Active Substance: SILDENAFIL CITRATE
  3. SELEXIPAG [Suspect]
     Active Substance: SELEXIPAG
     Route: 048
  4. SELEXIPAG [Suspect]
     Active Substance: SELEXIPAG
     Indication: PULMONARY ARTERIAL HYPERTENSION
     Route: 048
  5. SELEXIPAG [Suspect]
     Active Substance: SELEXIPAG
     Route: 048
  6. SELEXIPAG [Suspect]
     Active Substance: SELEXIPAG
     Dosage: 800 MCG IN AM AND 1000 MCG IN PM
     Route: 048

REACTIONS (8)
  - Headache [Not Recovered/Not Resolved]
  - Loss of consciousness [Unknown]
  - Dyspnoea [Unknown]
  - Presyncope [Unknown]
  - Syncope [Unknown]
  - Adverse event [Unknown]
  - Pain [Unknown]
  - Bone pain [Not Recovered/Not Resolved]

NARRATIVE: CASE EVENT DATE: 20201229
